FAERS Safety Report 19467739 (Version 1)
Quarter: 2021Q2

REPORT INFORMATION
  Report Type: Spontaneous
  Country: US (occurrence: US)
  Receive Date: 20210628
  Receipt Date: 20210628
  Transmission Date: 20210717
  Serious: Yes (Other)
  Sender: FDA-Public Use
  Company Number: None

PATIENT
  Age: 78 Year
  Sex: Male

DRUGS (7)
  1. FUROSIMIDE 40MG [Concomitant]
     Dates: start: 20200406
  2. LISINOPRIL. [Concomitant]
     Active Substance: LISINOPRIL
     Dates: start: 20200402
  3. NITROFURANTOIN MACROCRYSTALS [Suspect]
     Active Substance: NITROFURANTOIN
     Route: 048
     Dates: start: 20210625, end: 20210625
  4. FINASTERIDE 5MG [Concomitant]
     Active Substance: FINASTERIDE
     Dates: start: 20200407
  5. DOXAZOSIN [Concomitant]
     Active Substance: DOXAZOSIN MESYLATE
     Dates: start: 20200406
  6. METOPROLOL ER SUCC 50MG [Concomitant]
     Dates: start: 20200407
  7. WARFARIN 5MG [Concomitant]
     Active Substance: WARFARIN
     Dates: start: 20210402

REACTIONS (3)
  - Haemorrhage [None]
  - Therapy interrupted [None]
  - Blood urine present [None]

NARRATIVE: CASE EVENT DATE: 20210625
